FAERS Safety Report 6724769-6 (Version None)
Quarter: 2010Q2

REPORT INFORMATION
  Report Type: 
  Country: None (occurrence: None)
  Receive Date: 20100511
  Receipt Date: 20100429
  Transmission Date: 20101027
  Serious: Yes (Other)
  Sender: FDA-Public Use
  Company Number: 2008-78051-NL

PATIENT
  Age: 24 Year
  Sex: Female
  Weight: 51.1 kg

DRUGS (13)
  1. NUVARING [Suspect]
     Indication: CONTRACEPTION
     Dosage: VAG
     Route: 067
     Dates: start: 20060401, end: 20080101
  2. BENADRYL [Concomitant]
  3. TYLENOL (CAPLET) [Concomitant]
  4. SYNTHROID [Concomitant]
  5. PROPROXYPHENE NAPSYLATE/ W ACETAMINOPHRN [Concomitant]
  6. ................ [Concomitant]
  7. CEPHALEXIN [Concomitant]
  8. PROVENTIL-HFA [Concomitant]
  9. SSKI   (CON) [Concomitant]
  10. METOPROLOL  (CON) [Concomitant]
  11. NADOLOL [Concomitant]
  12. LEVOTHYROXINE SODIUM [Concomitant]
  13. METHIMAZOLE [Concomitant]

REACTIONS (26)
  - ACUTE SINUSITIS [None]
  - ALOPECIA [None]
  - AMENORRHOEA [None]
  - APHTHOUS STOMATITIS [None]
  - ASTHMA [None]
  - BASEDOW'S DISEASE [None]
  - BLINDNESS UNILATERAL [None]
  - BLOOD THYROID STIMULATING HORMONE DECREASED [None]
  - CEREBROVASCULAR ACCIDENT [None]
  - CHEST PAIN [None]
  - CHRONIC SINUSITIS [None]
  - DRUG EXPOSURE DURING PREGNANCY [None]
  - FEELING JITTERY [None]
  - MIGRAINE [None]
  - MUSCLE SPASMS [None]
  - NAUSEA [None]
  - PAIN [None]
  - PAIN IN EXTREMITY [None]
  - PARAESTHESIA [None]
  - PHARYNGITIS [None]
  - PREGNANCY [None]
  - SINUS TACHYCARDIA [None]
  - THINKING ABNORMAL [None]
  - TRANSIENT ISCHAEMIC ATTACK [None]
  - UPPER RESPIRATORY TRACT INFECTION [None]
  - VOMITING [None]
